FAERS Safety Report 5130026-4 (Version None)
Quarter: 2006Q4

REPORT INFORMATION
  Report Type: 
  Country: None (occurrence: None)
  Receive Date: 20061013
  Receipt Date: 20061002
  Transmission Date: 20070319
  Serious: Yes (Death, Hospitalization, Other)
  Sender: FDA-Public Use
  Company Number: 2006121245

PATIENT
  Sex: Male

DRUGS (5)
  1. INSPRA [Suspect]
     Indication: CARDIAC FAILURE CONGESTIVE
     Dosage: 25 MG (25 MG, FREQUENCY:  DAILY), ORAL
     Route: 048
  2. CARMEN (LERCANIDIPINE) [Concomitant]
  3. METOPROLOL TARTRATE [Concomitant]
  4. CANDESARTAN (CANDESARTAN) [Concomitant]
  5. MARCUMAR [Concomitant]

REACTIONS (6)
  - ATRIAL FIBRILLATION [None]
  - CEREBRAL HAEMORRHAGE [None]
  - CONFUSIONAL STATE [None]
  - FALL [None]
  - REFUSAL OF TREATMENT BY PATIENT [None]
  - RENAL FAILURE [None]
